FAERS Safety Report 4865080-8 (Version None)
Quarter: 2005Q4

REPORT INFORMATION
  Report Type: 
  Country: None (occurrence: None)
  Receive Date: 20051219
  Receipt Date: 20051212
  Transmission Date: 20060501
  Serious: Yes (Death, Hospitalization, Other)
  Sender: FDA-Public Use
  Company Number: 2005-09-0219

PATIENT
  Age: 48 Year
  Sex: Male
  Weight: 61 kg

DRUGS (12)
  1. REBETOL [Suspect]
     Indication: HEPATITIS C
     Dosage: 600-400 MG*QD ORAL
     Route: 048
     Dates: start: 20010620, end: 20020319
  2. REBETOL [Suspect]
     Indication: PROPHYLAXIS
     Dosage: 600-400 MG*QD ORAL
     Route: 048
     Dates: start: 20010620, end: 20020319
  3. INTRON A [Suspect]
     Indication: HEPATITIS C
     Dosage: 3-6 MIU* INTRAMUSCULAR
     Route: 030
     Dates: start: 20010619, end: 20020414
  4. INTRON A [Suspect]
     Indication: PROPHYLAXIS
     Dosage: 3-6 MIU* INTRAMUSCULAR
     Route: 030
     Dates: start: 20010619, end: 20020414
  5. SOLU-MEDROL                                    INJECTABLES [Suspect]
     Indication: LIVER TRANSPLANT REJECTION
     Dosage: 1600 - 25 MG INTRAVENOUS
     Route: 042
     Dates: start: 20010509, end: 20010612
  6. MEDROL [Suspect]
     Indication: IMMUNOSUPPRESSION
     Dosage: 20 - 2 MG ORAL
     Route: 048
     Dates: start: 20010613, end: 20020424
  7. PROGRAF [Concomitant]
  8. PROGRAF [Concomitant]
  9. URSO TABLETS [Concomitant]
  10. LANSOPRAZOLE [Concomitant]
  11. LASIX [Concomitant]
  12. ALDACTONE [Concomitant]

REACTIONS (12)
  - ANAEMIA [None]
  - CELLULITIS [None]
  - HEPATIC FAILURE [None]
  - HEPATIC FUNCTION ABNORMAL [None]
  - HEPATITIS C [None]
  - LIVER TRANSPLANT REJECTION [None]
  - LOSS OF CONSCIOUSNESS [None]
  - PRURITUS [None]
  - PYREXIA [None]
  - RESTLESSNESS [None]
  - SOLILOQUY [None]
  - THROMBOTIC THROMBOCYTOPENIC PURPURA [None]
